FAERS Safety Report 5243805-X (Version None)
Quarter: 2007Q1

REPORT INFORMATION
  Report Type: 
  Country: None (occurrence: None)
  Receive Date: 20070222
  Receipt Date: 20070212
  Transmission Date: 20070707
  Serious: Yes (Hospitalization)
  Sender: FDA-Public Use
  Company Number: US-BRISTOL-MYERS SQUIBB COMPANY-13676978

PATIENT
  Age: 63 Year
  Sex: Female

DRUGS (3)
  1. CISPLATIN [Suspect]
     Indication: OVARIAN CANCER METASTATIC
     Route: 033
  2. PACLITAXEL [Suspect]
     Indication: OVARIAN CANCER METASTATIC
     Route: 033
  3. DOCETAXEL [Suspect]
     Indication: OVARIAN CANCER METASTATIC
     Route: 042

REACTIONS (2)
  - INTESTINAL PROLAPSE [None]
  - POST PROCEDURAL COMPLICATION [None]
